FAERS Safety Report 10136781 (Version 3)
Quarter: 2014Q3

REPORT INFORMATION
  Report Type: Spontaneous
  Country: US (occurrence: None)
  Receive Date: 20140425
  Receipt Date: 20140717
  Transmission Date: 20150326
  Serious: Yes (Death)
  Sender: FDA-Public Use
  Company Number: UTC-047342

PATIENT
  Age: 60 Year
  Sex: Female
  Weight: 122.4 kg

DRUGS (3)
  1. SILDENAFIL [Concomitant]
     Active Substance: SILDENAFIL
  2. TYVASO [Suspect]
     Active Substance: TREPROSTINIL
     Indication: PULMONARY ARTERIAL HYPERTENSION
     Dosage: 4 IN 1 D
     Route: 055
     Dates: start: 20130710
  3. TRACLEER [Concomitant]
     Active Substance: BOSENTAN\BOSENTAN MONOHYDRATE

REACTIONS (1)
  - Death [None]
